FAERS Safety Report 8984337 (Version 2)
Quarter: 2013Q2

REPORT INFORMATION
  Report Type: Spontaneous
  Country: US (occurrence: None)
  Receive Date: 20120508
  Receipt Date: 20121107
  Transmission Date: 20140414
  Serious: Yes (Other)
  Sender: FDA-Public Use
  Company Number: 2012HGS-003280

PATIENT
  Age: 46 Year
  Sex: Female
  Weight: 65.77 kg

DRUGS (7)
  1. BENLYSTA [Suspect]
     Indication: SYSTEMIC LUPUS ERYTHEMATOSUS
     Dosage: 10 MG/KG, 1 IN 14 D, INTRAVENOUS DRIP
     Route: 041
     Dates: start: 20120201
  2. PLAQUENIL (HYDROXYCHLOROQUINE PHOSPHATE) [Concomitant]
  3. PREDNISONE [Concomitant]
  4. ZOLOFT (SERTRALINE HYDROCHLORIDE) [Concomitant]
  5. RESTORIL (CHLORMEZANONE) [Concomitant]
  6. ATIVAN (LORAZEPAM) [Concomitant]
  7. FOSAMAX (ALENDRONATE SODIUM) [Concomitant]

REACTIONS (1)
  - Diarrhoea [None]
